FAERS Safety Report 15658747 (Version 1)
Quarter: 2018Q4

REPORT INFORMATION
  Report Type: Report from Study
  Country: US (occurrence: US)
  Receive Date: 20181126
  Receipt Date: 20181126
  Transmission Date: 20190205
  Serious: No
  Sender: FDA-Public Use
  Company Number: US-VIFOR (INTERNATIONAL) INC.-VIT-2018-10573

PATIENT
  Age: 76 Year
  Sex: Female

DRUGS (14)
  1. METRONIDAZOL [Concomitant]
     Active Substance: METRONIDAZOLE
  2. RANITIDINE. [Concomitant]
     Active Substance: RANITIDINE
  3. CLONIDINE. [Concomitant]
     Active Substance: CLONIDINE
  4. ZEMPLAR [Concomitant]
     Active Substance: PARICALCITOL
  5. VELTASSA [Suspect]
     Active Substance: PATIROMER
     Indication: HYPERKALAEMIA
     Route: 048
     Dates: start: 20161222
  6. MINOCYCLINE [Concomitant]
     Active Substance: MINOCYCLINE\MINOCYCLINE HYDROCHLORIDE
  7. TRADJENTA [Concomitant]
     Active Substance: LINAGLIPTIN
  8. CEFDINIR. [Concomitant]
     Active Substance: CEFDINIR
  9. CYANOCOBALAMIN. [Concomitant]
     Active Substance: CYANOCOBALAMIN
  10. FLUTICASONE. [Concomitant]
     Active Substance: FLUTICASONE
  11. LANTUS [Concomitant]
     Active Substance: INSULIN GLARGINE
  12. VEISCARE [Concomitant]
  13. CALCITRIOL. [Concomitant]
     Active Substance: CALCITRIOL
  14. BUMETANIDE. [Concomitant]
     Active Substance: BUMETANIDE

REACTIONS (1)
  - Chest pain [Recovered/Resolved]

NARRATIVE: CASE EVENT DATE: 20181018
